FAERS Safety Report 8306023-4 (Version None)
Quarter: 2012Q2

REPORT INFORMATION
  Report Type: 
  Country: None (occurrence: None)
  Receive Date: 20120423
  Receipt Date: 20120410
  Transmission Date: 20120825
  Serious: Yes (Other)
  Sender: FDA-Public Use
  Company Number: CA-ROCHE-1001272

PATIENT
  Sex: Female
  Weight: 77.7 kg

DRUGS (5)
  1. SYNTHROID [Concomitant]
  2. PREDNISONE [Concomitant]
  3. AMLODIPINE [Concomitant]
     Indication: HYPERTENSION
  4. NAPROXEN [Concomitant]
  5. ACTEMRA [Suspect]
     Indication: RHEUMATOID ARTHRITIS
     Route: 042
     Dates: start: 20110705, end: 20120117

REACTIONS (5)
  - JOINT INJURY [None]
  - EAR INFECTION [None]
  - ARTHRALGIA [None]
  - STOMATITIS [None]
  - DEAFNESS UNILATERAL [None]
